FAERS Safety Report 7072132-3 (Version None)
Quarter: 2010Q4

REPORT INFORMATION
  Report Type: 
  Country: None (occurrence: None)
  Receive Date: 20101029
  Receipt Date: 20100129
  Transmission Date: 20110411
  Serious: No
  Sender: FDA-Public Use
  Company Number: A0833632A

PATIENT
  Sex: Female

DRUGS (8)
  1. ADVAIR DISKUS 100/50 [Suspect]
     Indication: CHRONIC OBSTRUCTIVE PULMONARY DISEASE
     Route: 055
  2. ADVAIR DISKUS 100/50 [Suspect]
     Route: 055
  3. ASTELIN [Concomitant]
     Dosage: 137MCG TWICE PER DAY
  4. LIPITOR [Concomitant]
  5. MULTIVITAMIN [Concomitant]
     Dosage: 600MG PER DAY
  6. RHINOCORT [Concomitant]
     Dosage: 32MCG PER DAY
  7. SYNTHROID [Concomitant]
     Dosage: 100MCG PER DAY
  8. PRILOSEC [Concomitant]

REACTIONS (3)
  - CHEST PAIN [None]
  - DYSPHONIA [None]
  - PRODUCT QUALITY ISSUE [None]
